FAERS Safety Report 4392516-1 (Version None)
Quarter: 2004Q3

REPORT INFORMATION
  Report Type: 
  Country: None (occurrence: None)
  Receive Date: 20040702
  Receipt Date: 20040621
  Transmission Date: 20050211
  Serious: Yes (Life-Threatening, Other)
  Sender: FDA-Public Use
  Company Number: HQWYE540721JUN04

PATIENT
  Age: 81 Year
  Sex: Male

DRUGS (6)
  1. AMIODARONE HCL [Suspect]
     Indication: ATRIAL FLUTTER
     Dosage: 200 MG 1X PER 1 DAY
     Route: 048
     Dates: start: 20040423, end: 20040425
  2. CARVEDILOL [Suspect]
     Indication: ESSENTIAL HYPERTENSION
     Dosage: ^125^ MG TWICE DAILY
     Route: 048
     Dates: start: 20030101, end: 20030425
  3. ENALAPRIL MALEATE [Concomitant]
  4. ISOPHANE INSULIN [Concomitant]
  5. ADIRO (ACETYLSALICYLIC ACID) [Concomitant]
  6. ATORVASTATIN CALCIUM [Concomitant]

REACTIONS (2)
  - BRADYCARDIA [None]
  - DRUG INTERACTION [None]
